FAERS Safety Report 5677869-6 (Version None)
Quarter: 2008Q1

REPORT INFORMATION
  Report Type: 
  Country: None (occurrence: None)
  Receive Date: 20080319
  Receipt Date: 20080308
  Transmission Date: 20080703
  Serious: Yes (Other)
  Sender: FDA-Public Use
  Company Number: CHPA2008US04311

PATIENT
  Age: 4 Year
  Sex: Male
  Weight: 17.7 kg

DRUGS (1)
  1. TRIAMINIC NIGHT TIME COLD + COUGH (NCH) (DIPHENHYDRAMINE, PHENYLEPHRIN [Suspect]
     Indication: COUGH
     Dosage: ORAL; 2 TSP, ORAL
     Route: 048
     Dates: start: 20080306, end: 20080306

REACTIONS (2)
  - CONVULSION [None]
  - INCORRECT DOSE ADMINISTERED [None]
